FAERS Safety Report 13537728 (Version 2)
Quarter: 2017Q2

REPORT INFORMATION
  Report Type: Spontaneous
  Country: US (occurrence: US)
  Receive Date: 20170511
  Receipt Date: 20170621
  Transmission Date: 20170830
  Serious: Yes (Hospitalization)
  Sender: FDA-Public Use
  Company Number: US-ACTELION-A-NJ2017-149752

PATIENT
  Age: 72 Year
  Sex: Female
  Weight: 87.75 kg

DRUGS (2)
  1. OPSUMIT [Suspect]
     Active Substance: MACITENTAN
     Indication: PULMONARY ARTERIAL HYPERTENSION
     Dosage: 10 MG, QD
     Route: 048
     Dates: start: 20150813
  2. WARFARIN [Concomitant]
     Active Substance: WARFARIN

REACTIONS (8)
  - Confusional state [Recovered/Resolved]
  - Hypertension [Unknown]
  - Hypoaesthesia [Recovered/Resolved]
  - Bone lesion [Unknown]
  - Transient ischaemic attack [Recovered/Resolved]
  - Speech disorder [Recovered/Resolved]
  - Bronchitis [Unknown]
  - Hypertensive emergency [Recovered/Resolved]

NARRATIVE: CASE EVENT DATE: 20170204
